FAERS Safety Report 16336439 (Version 1)
Quarter: 2019Q2

REPORT INFORMATION
  Report Type: Spontaneous
  Country: US (occurrence: US)
  Receive Date: 20190521
  Receipt Date: 20190521
  Transmission Date: 20190711
  Serious: Yes (Other)
  Sender: FDA-Public Use
  Company Number: US-PROCTER_AND_GAMBLE-GS19051931

PATIENT

DRUGS (2)
  1. NOT A HARD TOOTHBRUSH [Concomitant]
  2. CREST COMPLETE MULTI-BENEFIT WHITENING PLUS CINNAMON EXPRESSIONS [Suspect]
     Active Substance: SODIUM FLUORIDE
     Dosage: 1 APPLIC, 2 /DAY FOR 15 MINUTES
     Route: 002

REACTIONS (4)
  - Toothache [Unknown]
  - Gingival disorder [Unknown]
  - Gingival bleeding [Unknown]
  - Tooth loss [Unknown]
